FAERS Safety Report 24825793 (Version 1)
Quarter: 2025Q1

REPORT INFORMATION
  Report Type: Spontaneous
  Country: RO (occurrence: RO)
  Receive Date: 20250109
  Receipt Date: 20250109
  Transmission Date: 20250408
  Serious: Yes (Other)
  Sender: PFIZER
  Company Number: RO-MLMSERVICE-20241223-PI319139-00270-1

PATIENT
  Sex: Male

DRUGS (1)
  1. METHYLPREDNISOLONE [Suspect]
     Active Substance: METHYLPREDNISOLONE
     Indication: Nephrotic syndrome
     Dosage: 64 MG, 1X/DAY
     Route: 048
     Dates: start: 2016

REACTIONS (3)
  - Steroid diabetes [Unknown]
  - Nocardiosis [Recovered/Resolved]
  - Pulmonary cavitation [Recovered/Resolved]
